FAERS Safety Report 13289740 (Version 2)
Quarter: 2017Q2

REPORT INFORMATION
  Report Type: Spontaneous
  Country: ES (occurrence: ES)
  Receive Date: 20170302
  Receipt Date: 20170407
  Transmission Date: 20170830
  Serious: Yes (Death)
  Sender: FDA-Public Use
  Company Number: PHHY2017ES031569

PATIENT
  Age: 82 Year
  Sex: Male

DRUGS (1)
  1. REVOLADE [Suspect]
     Active Substance: ELTROMBOPAG
     Indication: CEREBELLAR HYPOPLASIA
     Dosage: 125 MG, QD
     Route: 048
     Dates: start: 20141117, end: 20161229

REACTIONS (2)
  - Pancreatitis acute [Fatal]
  - Product use in unapproved indication [Unknown]

NARRATIVE: CASE EVENT DATE: 20161228
